FAERS Safety Report 6232293-2 (Version None)
Quarter: 2009Q2

REPORT INFORMATION
  Report Type: 
  Country: None (occurrence: None)
  Receive Date: 20090617
  Receipt Date: 20090611
  Transmission Date: 20091009
  Serious: No
  Sender: FDA-Public Use
  Company Number: US-JNJFOC-20090604203

PATIENT
  Sex: Female
  Weight: 45.36 kg

DRUGS (6)
  1. DURAGESIC-100 [Suspect]
     Indication: BACK PAIN
     Dosage: TWO 100 UG/HR PATCH
     Route: 062
  2. OXYCODONE [Concomitant]
     Indication: PAIN
     Route: 048
  3. TRAZODONE HCL [Concomitant]
     Indication: ANTIDEPRESSANT THERAPY
     Route: 048
  4. HORMONE PATCH NOS [Concomitant]
     Indication: HORMONE REPLACEMENT THERAPY
     Route: 065
  5. AMBIEN [Concomitant]
     Indication: SLEEP DISORDER
     Route: 048
  6. OXYCONTIN [Concomitant]
     Indication: PAIN
     Route: 048

REACTIONS (6)
  - APPLICATION SITE ERYTHEMA [None]
  - APPLICATION SITE REACTION [None]
  - DRUG ADMINISTERED AT INAPPROPRIATE SITE [None]
  - INAPPROPRIATE SCHEDULE OF DRUG ADMINISTRATION [None]
  - MALAISE [None]
  - WRONG TECHNIQUE IN DRUG USAGE PROCESS [None]
